FAERS Safety Report 8374487-6 (Version None)
Quarter: 2012Q2

REPORT INFORMATION
  Report Type: 
  Country: None (occurrence: None)
  Receive Date: 20120521
  Receipt Date: 20120508
  Transmission Date: 20120825
  Serious: No
  Sender: FDA-Public Use
  Company Number: US-ASTRAZENECA-2010SE39200

PATIENT
  Age: 68 Year
  Sex: Female

DRUGS (6)
  1. PREMARIN [Concomitant]
  2. GOLYTELY [Concomitant]
  3. LEVOTHYROXINE SODIUM [Concomitant]
  4. QUETIAPINE FUMARATE [Suspect]
     Route: 065
  5. KLONOPIN [Concomitant]
  6. SEROQUEL [Suspect]
     Indication: PANIC ATTACK
     Route: 048

REACTIONS (10)
  - PARAESTHESIA [None]
  - OFF LABEL USE [None]
  - SKIN BURNING SENSATION [None]
  - DRUG INTOLERANCE [None]
  - MALAISE [None]
  - RASH [None]
  - ADVERSE DRUG REACTION [None]
  - DRUG INEFFECTIVE [None]
  - PRURITUS [None]
  - DYSSTASIA [None]
